FAERS Safety Report 8323189-0 (Version None)
Quarter: 2012Q2

REPORT INFORMATION
  Report Type: 
  Country: None (occurrence: None)
  Receive Date: 20120430
  Receipt Date: 20120420
  Transmission Date: 20120825
  Serious: Yes (Other)
  Sender: FDA-Public Use
  Company Number: US-ASTRAZENECA-2011SE26754

PATIENT
  Age: 58 Year
  Sex: Male

DRUGS (3)
  1. CRESTOR [Suspect]
     Route: 048
  2. NEXIUM [Suspect]
     Route: 048
  3. LIPITOR [Concomitant]

REACTIONS (3)
  - MALIGNANT NEOPLASM OF EYE [None]
  - VISUAL IMPAIRMENT [None]
  - LIVER FUNCTION TEST ABNORMAL [None]
